FAERS Safety Report 5157085-7 (Version None)
Quarter: 2006Q4

REPORT INFORMATION
  Report Type: 
  Country: None (occurrence: None)
  Receive Date: 20061127
  Receipt Date: 20060915
  Transmission Date: 20070319
  Serious: Yes (Other)
  Sender: FDA-Public Use
  Company Number: US-ELI_LILLY_AND_COMPANY-US200609003904

PATIENT
  Age: 29 Year
  Sex: Female
  Weight: 142.86 kg

DRUGS (2)
  1. ZYPREXA [Suspect]
     Indication: DEPRESSION
     Dosage: 10 MG, UNK
  2. ZYPREXA [Suspect]
     Dosage: 5 MG, UNK
     Dates: start: 20010101, end: 20041101

REACTIONS (4)
  - CARDIAC OPERATION [None]
  - DIABETES MELLITUS [None]
  - HYPERGLYCAEMIA [None]
  - OBESITY [None]
